FAERS Safety Report 19364851 (Version 1)
Quarter: 2021Q2

REPORT INFORMATION
  Report Type: Other
  Country: US (occurrence: US)
  Receive Date: 20210602
  Receipt Date: 20210602
  Transmission Date: 20210717
  Serious: Yes (Other)
  Sender: FDA-Public Use
  Company Number: US-ROCHE-2830960

PATIENT
  Sex: Female

DRUGS (2)
  1. VALCYTE [Suspect]
     Active Substance: VALGANCICLOVIR HYDROCHLORIDE
     Indication: RENAL TRANSPLANT
     Dosage: 1 TAB BID
     Route: 048
  2. VALCYTE [Suspect]
     Active Substance: VALGANCICLOVIR HYDROCHLORIDE
     Indication: PANCREAS TRANSPLANT

REACTIONS (2)
  - Off label use [Unknown]
  - Cytomegalovirus infection [Unknown]
